FAERS Safety Report 16715184 (Version 1)
Quarter: 2019Q3

REPORT INFORMATION
  Report Type: Report from Study
  Country: ES (occurrence: ES)
  Receive Date: 20190819
  Receipt Date: 20190819
  Transmission Date: 20191005
  Serious: Yes (Other)
  Sender: FDA-Public Use
  Company Number: ES-ACCORD-151568

PATIENT
  Sex: Female

DRUGS (2)
  1. TEMOZOLOMIDE. [Suspect]
     Active Substance: TEMOZOLOMIDE
     Indication: GLIOBLASTOMA MULTIFORME
     Dosage: 150 200 MG/SQ.METER,ONCE DAILY FOR 5 CONSECUTIVE DAYS EVERY 28 DAYS UP?TO 6 12 CYCLES OR UNTIL DI
     Route: 048
     Dates: start: 201603
  2. TEMOZOLOMIDE. [Suspect]
     Active Substance: TEMOZOLOMIDE
     Indication: PRODUCT USED FOR UNKNOWN INDICATION
     Dosage: 150 200 MG/ SQ. METER, ONCE DAILY FOR 5 CONSECUTIVE DAYS EVERY 28 DAYS UP TO 6 12 CYCLES OR UNTIL DI
     Route: 048
     Dates: start: 2016

REACTIONS (2)
  - Bone marrow failure [Unknown]
  - Subdural hygroma [Unknown]
